FAERS Safety Report 8378407-X (Version None)
Quarter: 2012Q2

REPORT INFORMATION
  Report Type: 
  Country: None (occurrence: None)
  Receive Date: 20120522
  Receipt Date: 20120515
  Transmission Date: 20120825
  Serious: Yes (Other)
  Sender: FDA-Public Use
  Company Number: CA-JNJFOC-20120515363

PATIENT
  Age: 64 Year
  Sex: Female
  Weight: 78.02 kg

DRUGS (3)
  1. UNKNOWN MEDICATION [Concomitant]
     Route: 065
  2. NICODERM [Suspect]
     Indication: SMOKING CESSATION THERAPY
     Route: 062
     Dates: start: 19920101
  3. NICORETTE [Concomitant]
     Indication: PRODUCT USED FOR UNKNOWN INDICATION
     Route: 065

REACTIONS (6)
  - MALAISE [None]
  - BREAST CANCER [None]
  - INSOMNIA [None]
  - APHAGIA [None]
  - MENOPAUSE [None]
  - ANXIETY [None]
